FAERS Safety Report 26157909 (Version 1)
Quarter: 2025Q4

REPORT INFORMATION
  Report Type: Spontaneous
  Country: US (occurrence: None)
  Receive Date: 20251215
  Receipt Date: 20251215
  Transmission Date: 20260117
  Serious: No
  Sender: FDA-CTU
  Company Number: None

PATIENT
  Age: 38 Year
  Sex: Male

DRUGS (1)
  1. TIRZEPATIDE [Suspect]
     Active Substance: TIRZEPATIDE
     Indication: Product used for unknown indication
     Dosage: FREQUENCY : WEEKLY;
     Route: 058
     Dates: start: 20250925, end: 20251117

REACTIONS (2)
  - Pancreatitis [None]
  - Cholecystectomy [None]

NARRATIVE: CASE EVENT DATE: 20251107
